FAERS Safety Report 7688000-X (Version None)
Quarter: 2011Q3

REPORT INFORMATION
  Report Type: 
  Country: None (occurrence: None)
  Receive Date: 20110817
  Receipt Date: 20110812
  Transmission Date: 20111222
  Serious: Yes (Hospitalization, Disabling)
  Sender: FDA-Public Use
  Company Number: DE-SANOFI-AVENTIS-2011SA033591

PATIENT
  Sex: Female
  Weight: 66 kg

DRUGS (7)
  1. BISOPROLOL FUMARATE [Concomitant]
     Route: 048
  2. PANTOPRAZOLE [Concomitant]
     Route: 048
  3. METAMIZOLE [Concomitant]
     Indication: PAIN
     Route: 048
     Dates: end: 20110601
  4. PENICILLIN [Concomitant]
     Dosage: DOSE:1.5 MEGAUNIT(S)
     Route: 048
     Dates: end: 20110501
  5. ARAVA [Suspect]
     Indication: RHEUMATOID ARTHRITIS
     Route: 048
     Dates: start: 20091101, end: 20110523
  6. AMLODIPINE [Concomitant]
     Route: 048
  7. PREDNISOLONE [Concomitant]
     Indication: RHEUMATOID ARTHRITIS
     Route: 048

REACTIONS (2)
  - SKIN ULCER [None]
  - VASCULITIS [None]
